FAERS Safety Report 6168187-0 (Version None)
Quarter: 2009Q2

REPORT INFORMATION
  Report Type: 
  Country: None (occurrence: None)
  Receive Date: 20090427
  Receipt Date: 20090420
  Transmission Date: 20091009
  Serious: Yes (Other)
  Sender: FDA-Public Use
  Company Number: PHHY2009JP15132

PATIENT
  Sex: Male

DRUGS (2)
  1. ZOMETA [Suspect]
     Indication: METASTASES TO BONE
     Route: 042
  2. ZOMETA [Suspect]
     Indication: PROSTATE CANCER

REACTIONS (3)
  - OSTEONECROSIS [None]
  - PURULENT DISCHARGE [None]
  - SWELLING [None]
